FAERS Safety Report 7668590-3 (Version None)
Quarter: 2011Q3

REPORT INFORMATION
  Report Type: 
  Country: None (occurrence: None)
  Receive Date: 20110808
  Receipt Date: 20110808
  Transmission Date: 20111222
  Serious: No
  Sender: FDA-Public Use
  Company Number: None

PATIENT
  Age: 73 Year
  Sex: Female
  Weight: 62.142 kg

DRUGS (2)
  1. NEXIUM [Suspect]
     Indication: CHEST PAIN
     Dosage: 1 CAPSULE
     Route: 048
     Dates: start: 20080101, end: 20110615
  2. NEXIUM [Suspect]
     Indication: GASTROOESOPHAGEAL REFLUX DISEASE
     Dosage: 1 CAPSULE
     Route: 048
     Dates: start: 20080101, end: 20110615

REACTIONS (1)
  - CHOKING SENSATION [None]
